FAERS Safety Report 18153224 (Version 3)
Quarter: 2020Q3

REPORT INFORMATION
  Report Type: Spontaneous
  Country: CZ (occurrence: CZ)
  Receive Date: 20200815
  Receipt Date: 20200928
  Transmission Date: 20201103
  Serious: Yes (Other)
  Sender: FDA-Public Use
  Company Number: CZ-TEVA-2020-CZ-1814280

PATIENT
  Age: 46 Year
  Sex: Female
  Weight: 48 kg

DRUGS (4)
  1. OXALIPLATIN. [Suspect]
     Active Substance: OXALIPLATIN
     Indication: ADENOCARCINOMA
     Dosage: 17 CYCLES IN FOLFOX REGIMEN
     Route: 042
     Dates: start: 20141222, end: 201510
  2. BEVACIZUMAB. [Concomitant]
     Active Substance: BEVACIZUMAB
     Indication: ADENOCARCINOMA
     Route: 065
  3. 5?FLOUROURACIL [Concomitant]
     Active Substance: FLUOROURACIL
     Indication: ADENOCARCINOMA
     Route: 065
  4. FOLINIC ACID [Concomitant]
     Active Substance: LEUCOVORIN
     Indication: ADENOCARCINOMA
     Route: 065

REACTIONS (1)
  - Hypophosphataemia [Unknown]
